FAERS Safety Report 13974170 (Version 2)
Quarter: 2018Q1

REPORT INFORMATION
  Report Type: Spontaneous
  Country: GB (occurrence: GB)
  Receive Date: 20170915
  Receipt Date: 20180123
  Transmission Date: 20180508
  Serious: Yes (Disabling, Other)
  Sender: FDA-Public Use
  Company Number: GB-ABBVIE-17K-167-2101895-00

PATIENT
  Age: 42 Year
  Sex: Male
  Weight: 146 kg

DRUGS (4)
  1. ADALIMUMAB [Suspect]
     Active Substance: ADALIMUMAB
     Route: 058
     Dates: start: 201501, end: 201702
  2. ADALIMUMAB [Suspect]
     Active Substance: ADALIMUMAB
     Indication: PSORIATIC ARTHROPATHY
     Route: 058
  3. FELODIPINE. [Concomitant]
     Active Substance: FELODIPINE
     Indication: PRODUCT USED FOR UNKNOWN INDICATION
     Route: 048
     Dates: start: 201702
  4. RAMIPRIL. [Concomitant]
     Active Substance: RAMIPRIL
     Indication: PRODUCT USED FOR UNKNOWN INDICATION
     Route: 048
     Dates: start: 201501

REACTIONS (7)
  - Dyskinesia [Unknown]
  - Memory impairment [Unknown]
  - Psoriatic arthropathy [Unknown]
  - Erectile dysfunction [Unknown]
  - Depression [Unknown]
  - Cognitive disorder [Unknown]
  - Tic [Unknown]

NARRATIVE: CASE EVENT DATE: 201609
